FAERS Safety Report 8412539-2 (Version None)
Quarter: 2012Q2

REPORT INFORMATION
  Report Type: 
  Country: None (occurrence: None)
  Receive Date: 20120605
  Receipt Date: 20120521
  Transmission Date: 20120825
  Serious: No
  Sender: FDA-Public Use
  Company Number: US-AMGEN-USASP2012023968

PATIENT
  Age: 41 Year
  Sex: Female

DRUGS (3)
  1. ENBREL [Suspect]
     Indication: RHEUMATOID ARTHRITIS
     Dosage: 50 MG, QWK
     Dates: start: 20120409
  2. ENBREL [Suspect]
     Indication: ANKYLOSING SPONDYLITIS
  3. ENBREL [Suspect]

REACTIONS (6)
  - TONSILLAR DISORDER [None]
  - PALATAL OEDEMA [None]
  - BACK PAIN [None]
  - HEADACHE [None]
  - NAUSEA [None]
  - MUSCULOSKELETAL STIFFNESS [None]
